FAERS Safety Report 10047945 (Version 3)
Quarter: 2014Q2

REPORT INFORMATION
  Report Type: Spontaneous
  Country: CH (occurrence: CH)
  Receive Date: 20140331
  Receipt Date: 20140508
  Transmission Date: 20141212
  Serious: Yes (Death, Hospitalization)
  Sender: FDA-Public Use
  Company Number: CH-BAXTER-2014BAX015900

PATIENT
  Sex: Male

DRUGS (17)
  1. EXTRANEAL [Suspect]
     Indication: PERITONEAL DIALYSIS
     Route: 033
  2. PHYSIONEAL 40 CLEAR-FLEX 2.27% [Suspect]
     Indication: GLOMERULONEPHRITIS MEMBRANOUS
     Route: 033
     Dates: start: 201302
  3. NUTRINEAL PD4 1.1% AMINOS?UREN [Suspect]
     Indication: GLOMERULONEPHRITIS MEMBRANOUS
     Route: 033
     Dates: start: 201302
  4. ALDACTONE [Concomitant]
     Indication: PRODUCT USED FOR UNKNOWN INDICATION
     Route: 048
  5. DAFALGAN [Concomitant]
     Indication: PRODUCT USED FOR UNKNOWN INDICATION
     Route: 048
  6. DIALVIT [Concomitant]
     Indication: PRODUCT USED FOR UNKNOWN INDICATION
     Route: 048
  7. ESOMEP [Concomitant]
     Indication: PRODUCT USED FOR UNKNOWN INDICATION
     Route: 048
  8. METOLAZON [Concomitant]
     Indication: PRODUCT USED FOR UNKNOWN INDICATION
     Route: 048
  9. NOROXIN [Concomitant]
     Indication: PRODUCT USED FOR UNKNOWN INDICATION
     Route: 048
  10. NOVALGIN [Concomitant]
     Indication: PRODUCT USED FOR UNKNOWN INDICATION
     Dosage: 20 DROPS
     Route: 048
  11. NOVALGIN [Concomitant]
  12. RENAGEL [Concomitant]
     Indication: PRODUCT USED FOR UNKNOWN INDICATION
     Route: 048
  13. TARGIN [Concomitant]
     Indication: PRODUCT USED FOR UNKNOWN INDICATION
  14. TOREM [Concomitant]
     Indication: PRODUCT USED FOR UNKNOWN INDICATION
     Route: 048
  15. VI-DE 3 [Concomitant]
     Indication: PRODUCT USED FOR UNKNOWN INDICATION
     Dosage: 20 DROPS
     Route: 048
  16. MAGNESIOCARD [Concomitant]
     Indication: PRODUCT USED FOR UNKNOWN INDICATION
  17. OXYNORM [Concomitant]
     Indication: PRODUCT USED FOR UNKNOWN INDICATION

REACTIONS (6)
  - Adenocarcinoma pancreas [Fatal]
  - Gastrointestinal disorder [Unknown]
  - Hyperkalaemia [Unknown]
  - Inflammatory marker increased [Unknown]
  - Tachycardia [Unknown]
  - Anaemia [Unknown]
